FAERS Safety Report 17125314 (Version 8)
Quarter: 2020Q2

REPORT INFORMATION
  Report Type: Spontaneous
  Country: CA (occurrence: CA)
  Receive Date: 20191207
  Receipt Date: 20200610
  Transmission Date: 20200713
  Serious: Yes (Hospitalization)
  Sender: FDA-Public Use
  Company Number: CA-CELLTRION INC.-2019CA026525

PATIENT

DRUGS (11)
  1. INFLECTRA [Suspect]
     Active Substance: INFLIXIMAB-DYYB
     Indication: CROHN^S DISEASE
     Dosage: 5 MG/KG, EVERY 8 WEEKS
  2. CIPROFLOXACIN. [Concomitant]
     Active Substance: CIPROFLOXACIN
     Indication: INTESTINAL FIBROSIS
     Dosage: UNK
     Route: 042
     Dates: start: 201611
  3. FLAGYL [Concomitant]
     Active Substance: METRONIDAZOLE\METRONIDAZOLE HYDROCHLORIDE
     Indication: INTESTINAL FIBROSIS
     Dosage: UNK
     Route: 042
     Dates: start: 201611
  4. INFLECTRA [Suspect]
     Active Substance: INFLIXIMAB-DYYB
     Dosage: 300 MG (6MG/KG), Q 0,2,6 THEN EVERY 8 WEEKS
     Route: 042
  5. SOLU-MEDROL [Concomitant]
     Active Substance: METHYLPREDNISOLONE SODIUM SUCCINATE
     Indication: INTESTINAL FIBROSIS
     Dosage: 30 MG, 2X/DAY
     Route: 042
     Dates: start: 201611
  6. INFLECTRA [Suspect]
     Active Substance: INFLIXIMAB-DYYB
     Dosage: 300 MG (6MG/KG), Q 0,2,6 THEN EVERY 8 WEEKS
     Route: 042
     Dates: start: 20191214, end: 20191214
  7. INFLECTRA [Suspect]
     Active Substance: INFLIXIMAB-DYYB
     Dosage: 300 MG (6MG/KG), Q 0,2,6 THEN EVERY 8 WEEKS
     Route: 042
     Dates: start: 20191214, end: 20191214
  8. INFLECTRA [Suspect]
     Active Substance: INFLIXIMAB-DYYB
     Dosage: 300 MG (6MG/KG), Q 0,2,6 THEN EVERY 8 WEEKS
     Route: 042
     Dates: start: 20200113
  9. INFLECTRA [Suspect]
     Active Substance: INFLIXIMAB-DYYB
     Dosage: 300 MG (6MG/KG), Q 0,2,6 THEN EVERY 8 WEEKS
     Route: 042
     Dates: start: 20200319
  10. INFLECTRA [Suspect]
     Active Substance: INFLIXIMAB-DYYB
     Dosage: 300 MG (6MG/KG), Q 0,2,6 THEN EVERY 8 WEEKS
     Route: 042
     Dates: start: 20200523
  11. INFLECTRA [Suspect]
     Active Substance: INFLIXIMAB-DYYB
     Dosage: 300 MG (6MG/KG), Q 0,2,6 THEN EVERY 8 WEEKS
     Route: 042
     Dates: start: 20191130

REACTIONS (8)
  - Vomiting [Unknown]
  - Heart rate increased [Recovered/Resolved]
  - Nausea [Unknown]
  - Intentional product use issue [Unknown]
  - Condition aggravated [Unknown]
  - Product use issue [Unknown]
  - Off label use [Unknown]
  - Malaise [Recovering/Resolving]

NARRATIVE: CASE EVENT DATE: 20191214
